FAERS Safety Report 6779314-6 (Version None)
Quarter: 2010Q2

REPORT INFORMATION
  Report Type: 
  Country: None (occurrence: None)
  Receive Date: 20100618
  Receipt Date: 20100607
  Transmission Date: 20101027
  Serious: Yes (Other)
  Sender: FDA-Public Use
  Company Number: PHFR2010GB00903

PATIENT
  Sex: Female

DRUGS (1)
  1. CLOZARIL [Suspect]
     Indication: SCHIZOPHRENIA
     Dosage: 425 MG/DAY
     Route: 048
     Dates: start: 20100413

REACTIONS (2)
  - DYSPNOEA [None]
  - ELECTROCARDIOGRAM ABNORMAL [None]
